FAERS Safety Report 22534760 (Version 3)
Quarter: 2023Q2

REPORT INFORMATION
  Report Type: Report from Study
  Country: JP (occurrence: JP)
  Receive Date: 20230608
  Receipt Date: 20230620
  Transmission Date: 20230721
  Serious: Yes (Death, Hospitalization, Other)
  Sender: FDA-Public Use
  Company Number: JP-ABBVIE-5281381

PATIENT
  Age: 79 Year
  Sex: Male

DRUGS (37)
  1. VENCLEXTA [Suspect]
     Active Substance: VENETOCLAX
     Indication: Acute myeloid leukaemia
     Route: 048
     Dates: start: 20210816, end: 20210816
  2. VENCLEXTA [Suspect]
     Active Substance: VENETOCLAX
     Indication: Acute myeloid leukaemia
     Route: 048
     Dates: start: 20210818, end: 20210906
  3. VENCLEXTA [Suspect]
     Active Substance: VENETOCLAX
     Indication: Acute myeloid leukaemia
     Route: 048
     Dates: start: 20210928, end: 20211018
  4. VENCLEXTA [Suspect]
     Active Substance: VENETOCLAX
     Indication: Acute myeloid leukaemia
     Route: 048
     Dates: start: 20211217, end: 20220106
  5. VENCLEXTA [Suspect]
     Active Substance: VENETOCLAX
     Indication: Acute myeloid leukaemia
     Route: 048
     Dates: start: 20210817, end: 20210817
  6. DAPTOMYCIN [Concomitant]
     Active Substance: DAPTOMYCIN
     Indication: Infection prophylaxis
     Dates: start: 20210821, end: 20210825
  7. DAPTOMYCIN [Concomitant]
     Active Substance: DAPTOMYCIN
     Indication: Infection prophylaxis
     Dates: start: 20220116, end: 20220120
  8. PIPERACILLIN AND TAZOBACTAM [Concomitant]
     Active Substance: PIPERACILLIN SODIUM\TAZOBACTAM SODIUM
     Indication: Infection prophylaxis
     Dates: start: 20220227, end: 20220309
  9. PIPERACILLIN AND TAZOBACTAM [Concomitant]
     Active Substance: PIPERACILLIN SODIUM\TAZOBACTAM SODIUM
     Indication: Infection prophylaxis
     Dates: start: 20211231, end: 20220110
  10. PIPERACILLIN AND TAZOBACTAM [Concomitant]
     Active Substance: PIPERACILLIN SODIUM\TAZOBACTAM SODIUM
     Indication: Infection prophylaxis
     Dates: start: 20210817, end: 20210822
  11. CEFAZOLIN SODIUM [Concomitant]
     Active Substance: CEFAZOLIN SODIUM
     Indication: Infection prophylaxis
     Dates: start: 20220310, end: 20220318
  12. CEFAZOLIN SODIUM [Concomitant]
     Active Substance: CEFAZOLIN SODIUM
     Indication: Infection prophylaxis
     Dates: start: 20210811, end: 20210817
  13. CEFAZOLIN SODIUM [Concomitant]
     Active Substance: CEFAZOLIN SODIUM
     Indication: Infection prophylaxis
     Dates: start: 20210904, end: 20210909
  14. CEFAZOLIN SODIUM [Concomitant]
     Active Substance: CEFAZOLIN SODIUM
     Indication: Infection prophylaxis
     Dates: start: 20220225, end: 20220227
  15. CEFAZOLIN SODIUM [Concomitant]
     Active Substance: CEFAZOLIN SODIUM
     Indication: Infection prophylaxis
     Dates: start: 20211230, end: 20211231
  16. CEFAZOLIN SODIUM [Concomitant]
     Active Substance: CEFAZOLIN SODIUM
     Indication: Infection prophylaxis
     Dates: start: 20211012, end: 20211108
  17. POSACONAZOLE [Concomitant]
     Active Substance: POSACONAZOLE
     Indication: Infection prophylaxis
     Dates: start: 20210831, end: 20220331
  18. METHYLPREDNISOLONE [Concomitant]
     Active Substance: METHYLPREDNISOLONE
     Indication: Infection prophylaxis
     Dates: start: 20211114, end: 20211115
  19. VORICONAZOLE [Concomitant]
     Active Substance: VORICONAZOLE
     Indication: Infection prophylaxis
     Dates: start: 20210813, end: 20210830
  20. TEICOPLANIN [Concomitant]
     Active Substance: TEICOPLANIN
     Indication: Infection prophylaxis
     Dates: start: 20220120, end: 20220214
  21. TEICOPLANIN [Concomitant]
     Active Substance: TEICOPLANIN
     Indication: Infection prophylaxis
     Dates: start: 20210913, end: 20210921
  22. ISEPAMICIN SULFATE [Concomitant]
     Active Substance: ISEPAMICIN SULFATE
     Indication: Infection prophylaxis
     Dates: start: 20211012, end: 20211108
  23. ISEPAMICIN SULFATE [Concomitant]
     Active Substance: ISEPAMICIN SULFATE
     Indication: Infection prophylaxis
     Dates: start: 20220310, end: 20220318
  24. ISEPAMICIN SULFATE [Concomitant]
     Active Substance: ISEPAMICIN SULFATE
     Indication: Infection prophylaxis
     Dates: start: 20211230, end: 20211231
  25. ISEPAMICIN SULFATE [Concomitant]
     Active Substance: ISEPAMICIN SULFATE
     Indication: Infection prophylaxis
     Dates: start: 20220225, end: 20220227
  26. ISEPAMICIN SULFATE [Concomitant]
     Active Substance: ISEPAMICIN SULFATE
     Indication: Infection prophylaxis
     Dates: start: 20210904, end: 20210909
  27. ISEPAMICIN SULFATE [Concomitant]
     Active Substance: ISEPAMICIN SULFATE
     Indication: Infection prophylaxis
     Dates: start: 20210811, end: 20210817
  28. TEDIZOLID PHOSPHATE [Concomitant]
     Active Substance: TEDIZOLID PHOSPHATE
     Indication: Infection prophylaxis
     Dates: start: 20220215, end: 20220331
  29. MICAFUNGIN [Concomitant]
     Active Substance: MICAFUNGIN SODIUM
     Indication: Infection prophylaxis
     Dates: start: 20210811, end: 20210813
  30. SULFAMETHOXAZOLE AND TRIMETHOPRIM [Concomitant]
     Active Substance: SULFAMETHOXAZOLE\TRIMETHOPRIM
     Indication: Infection prophylaxis
     Dates: start: 20211101, end: 20220310
  31. LEVOFLOXACIN HEMIHYDRATE [Concomitant]
     Active Substance: LEVOFLOXACIN
     Indication: Infection prophylaxis
     Dates: start: 20210830, end: 20210921
  32. AZACITIDINE [Concomitant]
     Active Substance: AZACITIDINE
     Indication: Acute myeloid leukaemia
     Dates: start: 20210927, end: 20211003
  33. AZACITIDINE [Concomitant]
     Active Substance: AZACITIDINE
     Indication: Acute myeloid leukaemia
     Dates: start: 20211217, end: 20211223
  34. AZACITIDINE [Concomitant]
     Active Substance: AZACITIDINE
     Indication: Acute myeloid leukaemia
     Dates: start: 20210813, end: 20210819
  35. MEROPENEM [Concomitant]
     Active Substance: MEROPENEM
     Indication: Infection prophylaxis
     Dates: start: 20210909, end: 20210921
  36. MEROPENEM [Concomitant]
     Active Substance: MEROPENEM
     Indication: Infection prophylaxis
     Dates: start: 20210822, end: 20210830
  37. MEROPENEM [Concomitant]
     Active Substance: MEROPENEM
     Indication: Infection prophylaxis
     Dates: start: 20220110, end: 20220224

REACTIONS (2)
  - Acute myeloid leukaemia [Fatal]
  - Colon cancer [Unknown]

NARRATIVE: CASE EVENT DATE: 20220307
